FAERS Safety Report 8224434-2 (Version None)
Quarter: 2012Q1

REPORT INFORMATION
  Report Type: 
  Country: None (occurrence: None)
  Receive Date: 20120321
  Receipt Date: 20120312
  Transmission Date: 20120608
  Serious: Yes (Other)
  Sender: FDA-Public Use
  Company Number: US-ABBOTT-12P-163-0914593-00

PATIENT
  Sex: Male

DRUGS (1)
  1. HUMIRA [Suspect]
     Indication: RHEUMATOID ARTHRITIS
     Route: 058
     Dates: start: 20000201

REACTIONS (4)
  - INFLUENZA LIKE ILLNESS [None]
  - LARGE INTESTINAL ULCER [None]
  - COLON CANCER [None]
  - SQUAMOUS CELL CARCINOMA OF SKIN [None]
